APPROVED DRUG PRODUCT: ZIAGEN
Active Ingredient: ABACAVIR SULFATE
Strength: EQ 20MG BASE/ML
Dosage Form/Route: SOLUTION;ORAL
Application: N020978 | Product #001 | TE Code: AA
Applicant: VIIV HEALTHCARE CO
Approved: Dec 17, 1998 | RLD: Yes | RS: Yes | Type: RX